FAERS Safety Report 13247418 (Version 1)
Quarter: 2017Q1

REPORT INFORMATION
  Report Type: Spontaneous
  Country: US (occurrence: US)
  Receive Date: 20170217
  Receipt Date: 20170217
  Transmission Date: 20170428
  Serious: Yes (Death, Hospitalization)
  Sender: FDA-Public Use
  Company Number: US-ASTRAZENECA-2017SE15794

PATIENT
  Age: 65 Year
  Sex: Male
  Weight: 102.1 kg

DRUGS (1)
  1. ZOLADEX [Suspect]
     Active Substance: GOSERELIN ACETATE
     Indication: PROSTATE CANCER
     Dosage: EVERY MONTH/SOMETIMES EVERY 3 MONTHS
     Route: 058
     Dates: start: 1992, end: 2011

REACTIONS (2)
  - Cerebrovascular accident [Fatal]
  - Blood cholesterol increased [Unknown]

NARRATIVE: CASE EVENT DATE: 2003
